FAERS Safety Report 4444367-7 (Version None)
Quarter: 2004Q3

REPORT INFORMATION
  Report Type: 
  Country: None (occurrence: None)
  Receive Date: 20040802
  Receipt Date: 20040607
  Transmission Date: 20050211
  Serious: No
  Sender: FDA-Public Use
  Company Number: 2004-118280-NL

PATIENT
  Age: 22 Year
  Sex: Female

DRUGS (6)
  1. NUVARING [Suspect]
     Indication: CONTRACEPTION
     Dosage: DF DAILY VAGINAL
     Route: 067
     Dates: start: 20021201
  2. MITROCONAZOLE VAGINAL SUPPOSITORY [Concomitant]
  3. LANTUS [Concomitant]
  4. HUMALOG [Concomitant]
  5. CHLOR-TRIMETON [Concomitant]
  6. AVALIDE [Concomitant]

REACTIONS (3)
  - DEVICE FAILURE [None]
  - VAGINAL MYCOSIS [None]
  - VULVOVAGINAL DISCOMFORT [None]
